FAERS Safety Report 23887694 (Version 2)
Quarter: 2024Q2

REPORT INFORMATION
  Report Type: Spontaneous
  Country: US (occurrence: US)
  Receive Date: 20240523
  Receipt Date: 20240604
  Transmission Date: 20240716
  Serious: Yes (Other)
  Sender: FDA-Public Use
  Company Number: US-SUNPHARMA-2024R1-447932AA

PATIENT
  Sex: Male

DRUGS (4)
  1. ILUMYA [Suspect]
     Active Substance: TILDRAKIZUMAB-ASMN
     Indication: Product used for unknown indication
     Dosage: 100 MILLIGRAM, ON WEEK 0, WEEK 4, AND THEN EVERY 12 WEEKS THEREAFTER
     Route: 065
     Dates: start: 202402
  2. VITAMIN D3 [Concomitant]
     Active Substance: CHOLECALCIFEROL
     Route: 065
  3. VITAMIN D3 [Concomitant]
     Active Substance: CHOLECALCIFEROL
     Indication: Product used for unknown indication
  4. VITAMIN D3 [Concomitant]
     Active Substance: CHOLECALCIFEROL

REACTIONS (2)
  - Bipolar disorder [Unknown]
  - Depression [Unknown]
